FAERS Safety Report 23307960 (Version 1)
Quarter: 2023Q4

REPORT INFORMATION
  Report Type: Spontaneous
  Country: PT (occurrence: PT)
  Receive Date: 20231218
  Receipt Date: 20231218
  Transmission Date: 20240110
  Serious: Yes (Other)
  Sender: FDA-Public Use
  Company Number: None

PATIENT
  Age: 38 Year

DRUGS (4)
  1. FLUOROURACIL [Suspect]
     Active Substance: FLUOROURACIL
     Indication: Adenocarcinoma of colon
     Dosage: TIME INTERVAL: 1 CYCLICAL: ACCORDING TO PROTOCOL
     Route: 042
     Dates: start: 20230509, end: 20230509
  2. LEUCOVORIN CALCIUM [Suspect]
     Active Substance: LEUCOVORIN CALCIUM
     Indication: Adenocarcinoma of colon
     Dosage: TIME INTERVAL: 1 CYCLICAL: ACCORDING TO PROTOCOL
     Route: 042
     Dates: start: 20230509, end: 20230509
  3. OXALIPLATIN [Suspect]
     Active Substance: OXALIPLATIN
     Indication: Adenocarcinoma of colon
     Dosage: TIME INTERVAL: 1 CYCLICAL: ACCORDING TO PROTOCOL; 130 MG/M2
     Route: 042
     Dates: start: 20230509, end: 20230509
  4. MVASI [Suspect]
     Active Substance: BEVACIZUMAB-AWWB
     Indication: Adenocarcinoma of colon
     Dosage: TIME INTERVAL: 1 CYCLICAL: ACCORDING TO PROTOCOL; DOSE OF 7.5MG/KG
     Route: 042
     Dates: start: 20230509, end: 20230509

REACTIONS (1)
  - Rash [Recovered/Resolved]

NARRATIVE: CASE EVENT DATE: 20230509
